FAERS Safety Report 5701695-2 (Version None)
Quarter: 2008Q2

REPORT INFORMATION
  Report Type: 
  Country: None (occurrence: None)
  Receive Date: 20080409
  Receipt Date: 20080409
  Transmission Date: 20081010
  Serious: No
  Sender: FDA-Public Use
  Company Number: None

PATIENT
  Age: 4 Year
  Sex: Male
  Weight: 17.5996 kg

DRUGS (2)
  1. CONCERTA [Suspect]
     Indication: ATTENTION DEFICIT/HYPERACTIVITY DISORDER
     Dates: start: 20080123, end: 20080125
  2. CONCERTA [Suspect]
     Dates: start: 20080125, end: 20080213

REACTIONS (6)
  - FORMICATION [None]
  - HALLUCINATION [None]
  - MICTURITION DISORDER [None]
  - MIDDLE INSOMNIA [None]
  - PARAESTHESIA [None]
  - SLEEP DISORDER [None]
